FAERS Safety Report 8008194-6 (Version None)
Quarter: 2011Q4

REPORT INFORMATION
  Report Type: 
  Country: None (occurrence: None)
  Receive Date: 20111222
  Receipt Date: 20111222
  Transmission Date: 20120403
  Serious: Yes (Other)
  Sender: FDA-Public Use
  Company Number: None

PATIENT
  Sex: Female
  Weight: 74.8435 kg

DRUGS (1)
  1. SUPREP BOWEL PREP KIT LOT 2811016 BRAINTREE [Suspect]
     Indication: COLONOSCOPY
     Dosage: 6 OZ BTL SUPREP MIX WATER TO 16 OZ LINE 2 MO 16 OZ OF WATER , REPEAT
     Dates: start: 20111127

REACTIONS (2)
  - VOMITING [None]
  - HEADACHE [None]
